FAERS Safety Report 8575129-7 (Version None)
Quarter: 2012Q3

REPORT INFORMATION
  Report Type: 
  Country: None (occurrence: None)
  Receive Date: 20120807
  Receipt Date: 20120724
  Transmission Date: 20120928
  Serious: Yes (Other)
  Sender: FDA-Public Use
  Company Number: CN-PFIZER INC-2012189240

PATIENT
  Age: 56 Year
  Sex: Female

DRUGS (2)
  1. CEFTIZOXIME [Concomitant]
     Dosage: UNK
     Route: 051
  2. ARGATROBAN [Suspect]
     Indication: ANTICOAGULANT THERAPY
     Dosage: 10 MG, 2X/DAY
     Route: 041
     Dates: start: 20120717, end: 20120722

REACTIONS (2)
  - MUSCLE TWITCHING [None]
  - SYNCOPE [None]
